FAERS Safety Report 8432856 (Version 3)
Quarter: 2014Q3

REPORT INFORMATION
  Report Type: Spontaneous
  Country: CA (occurrence: CA)
  Receive Date: 20120229
  Receipt Date: 20140909
  Transmission Date: 20150326
  Serious: Yes (Hospitalization, Other)
  Sender: FDA-Public Use
  Company Number: CA-US-EMD SERONO, INC.-7113882

PATIENT
  Age: 45 Year
  Sex: Female

DRUGS (3)
  1. REBIF [Suspect]
     Active Substance: INTERFERON BETA-1A
     Indication: RELAPSING-REMITTING MULTIPLE SCLEROSIS
     Route: 058
     Dates: start: 20010827
  2. REBIF [Suspect]
     Active Substance: INTERFERON BETA-1A
     Route: 058
     Dates: start: 20120217, end: 201203
  3. GABAPENTIN. [Concomitant]
     Active Substance: GABAPENTIN
     Indication: NEURALGIA
     Route: 048

REACTIONS (16)
  - Necrotising fasciitis [Unknown]
  - Pollakiuria [Unknown]
  - Paraesthesia [Unknown]
  - Nausea [Unknown]
  - Injection site bruising [Unknown]
  - Injection site abscess [Recovering/Resolving]
  - Injection site hypersensitivity [Unknown]
  - Injection site erythema [Unknown]
  - Wrong technique in drug usage process [Unknown]
  - Injection site infection [Recovering/Resolving]
  - Injection site induration [Unknown]
  - Injection site pain [Unknown]
  - Product quality issue [Unknown]
  - Tremor [Unknown]
  - Injection site warmth [Unknown]
  - Injection site mass [Unknown]

NARRATIVE: CASE EVENT DATE: 20120201
